FAERS Safety Report 13840225 (Version 3)
Quarter: 2017Q3

REPORT INFORMATION
  Report Type: Spontaneous
  Country: US (occurrence: US)
  Receive Date: 20170807
  Receipt Date: 20170823
  Transmission Date: 20171127
  Serious: Yes (Other)
  Sender: FDA-Public Use
  Company Number: US-PFIZER INC-2017338409

PATIENT
  Age: 63 Year
  Sex: Female

DRUGS (8)
  1. OXYCODONE [Interacting]
     Active Substance: OXYCODONE
     Indication: PAIN
     Dosage: 30 MG, 2X/DAY (EXTENDED RELEASE, EVERY 12 HOURS)
  2. VANCOMYCIN [Concomitant]
     Active Substance: VANCOMYCIN
     Indication: PNEUMONIA FUNGAL
     Dosage: UNK
     Route: 042
  3. PIPERACILIN/TAZOBACTAM [Concomitant]
     Active Substance: PIPERACILLIN SODIUM\TAZOBACTAM SODIUM
     Indication: PNEUMONIA FUNGAL
     Dosage: UNK
     Route: 042
  4. PIPERACILIN/TAZOBACTAM [Concomitant]
     Active Substance: PIPERACILLIN SODIUM\TAZOBACTAM SODIUM
     Indication: EVIDENCE BASED TREATMENT
  5. VANCOMYCIN [Concomitant]
     Active Substance: VANCOMYCIN
     Indication: EVIDENCE BASED TREATMENT
  6. VORICONAZOLE. [Interacting]
     Active Substance: VORICONAZOLE
     Indication: EVIDENCE BASED TREATMENT
  7. OXYCODONE [Interacting]
     Active Substance: OXYCODONE
     Indication: MUSCULOSKELETAL PAIN
     Dosage: UNK, EVERY 4 HRS (15-30 MG EVERY 4 HOURS AS NEEDED)
  8. VORICONAZOLE. [Suspect]
     Active Substance: VORICONAZOLE
     Indication: PNEUMONIA FUNGAL
     Dosage: UNK
     Route: 042

REACTIONS (2)
  - Neurotoxicity [Recovering/Resolving]
  - Drug interaction [Recovering/Resolving]
